FAERS Safety Report 4806640-X (Version None)
Quarter: 2005Q4

REPORT INFORMATION
  Report Type: 
  Country: None (occurrence: None)
  Receive Date: 20051019
  Receipt Date: 20050930
  Transmission Date: 20060501
  Serious: Yes (Hospitalization, Other)
  Sender: FDA-Public Use
  Company Number: US_000745409

PATIENT
  Age: 55 Year
  Sex: Female
  Weight: 100 kg

DRUGS (4)
  1. HUMALOG [Suspect]
     Indication: DIABETES MELLITUS
     Dosage: 24 U/1 DAY
     Dates: start: 19960101
  2. HUMULIN L [Suspect]
     Indication: DIABETES MELLITUS
     Dosage: 24 U/1 DAY
     Dates: start: 20010101
  3. HUMULIN N [Suspect]
     Indication: DIABETES MELLITUS
     Dosage: 14 U/1  IN THE MORNING
     Dates: start: 19820101
  4. HUMULIN R [Suspect]

REACTIONS (21)
  - ABDOMINAL DISTENSION [None]
  - APHAGIA [None]
  - BLOOD GLUCOSE FLUCTUATION [None]
  - CHROMATOPSIA [None]
  - DIABETIC RETINOPATHY [None]
  - DYSPHAGIA [None]
  - FEELING ABNORMAL [None]
  - FEELING HOT [None]
  - GASTRIC DISORDER [None]
  - HEART RATE IRREGULAR [None]
  - HEPATIC FUNCTION ABNORMAL [None]
  - HYPERGLYCAEMIA [None]
  - HYPERHIDROSIS [None]
  - HYPOGLYCAEMIA [None]
  - IMPAIRED HEALING [None]
  - NEUROPATHY [None]
  - RENAL IMPAIRMENT [None]
  - SKIN LACERATION [None]
  - THERAPY NON-RESPONDER [None]
  - WEIGHT DECREASED [None]
  - WEIGHT INCREASED [None]
